FAERS Safety Report 9513155 (Version 2)
Quarter: 2013Q3

REPORT INFORMATION
  Report Type: Spontaneous
  Country: US (occurrence: US)
  Receive Date: 20130910
  Receipt Date: 20130919
  Transmission Date: 20140515
  Serious: No
  Sender: FDA-Public Use
  Company Number: US-PFIZER INC-2013256579

PATIENT
  Age: 30 Year
  Sex: Female
  Weight: 63.5 kg

DRUGS (1)
  1. CHILDREN^S MOTRIN [Suspect]
     Dosage: UNK
     Route: 048
     Dates: start: 20130710, end: 20130710

REACTIONS (2)
  - Cough [Recovered/Resolved]
  - Dysgeusia [Unknown]
